FAERS Safety Report 16196609 (Version 1)
Quarter: 2019Q2

REPORT INFORMATION
  Report Type: Spontaneous
  Country: US (occurrence: US)
  Receive Date: 20190412
  Receipt Date: 20190412
  Transmission Date: 20190711
  Serious: Yes (Disabling)
  Sender: FDA-Public Use
  Company Number: None

PATIENT
  Age: 44 Year
  Sex: Female
  Weight: 63 kg

DRUGS (8)
  1. TURMERIC [Concomitant]
     Active Substance: HERBALS\TURMERIC
  2. VITAMIN E [Concomitant]
     Active Substance: .ALPHA.-TOCOPHEROL
  3. COLLAGEN [Concomitant]
     Active Substance: COLLAGEN
  4. B VITAMINS [Concomitant]
     Active Substance: CYANOCOBALAMIN\DEXPANTHENOL\NIACINAMIDE\PYRIDOXINE HYDROCHLORIDE\RIBOFLAVIN 5^-PHOSPHATE SODIUM\THIAMINE HYDROCHLORIDE\VITAMIN B COMPLEX
  5. OFLOXACINE [Suspect]
     Active Substance: OFLOXACIN
     Indication: URINARY TRACT INFECTION
     Dosage: ?          QUANTITY:1 TABLET(S);?
     Route: 048
     Dates: start: 20180716, end: 20180721
  6. MAGNESIUM [Concomitant]
     Active Substance: MAGNESIUM
  7. COQ10 [Concomitant]
     Active Substance: UBIDECARENONE
  8. VITAMIN D [Concomitant]
     Active Substance: VITAMIN D NOS

REACTIONS (22)
  - Neck pain [None]
  - Paraesthesia [None]
  - Back pain [None]
  - Insomnia [None]
  - Musculoskeletal stiffness [None]
  - Gingival pain [None]
  - Crepitations [None]
  - Musculoskeletal pain [None]
  - Loss of personal independence in daily activities [None]
  - Tinnitus [None]
  - Cardiac flutter [None]
  - Tendon disorder [None]
  - Muscle spasms [None]
  - Nausea [None]
  - Feeling abnormal [None]
  - Arthralgia [None]
  - Pain in extremity [None]
  - Taste disorder [None]
  - Burning sensation [None]
  - Muscle twitching [None]
  - Bedridden [None]
  - Heart rate increased [None]

NARRATIVE: CASE EVENT DATE: 20180722
